FAERS Safety Report 7392077-9 (Version None)
Quarter: 2011Q2

REPORT INFORMATION
  Report Type: 
  Country: None (occurrence: None)
  Receive Date: 20110404
  Receipt Date: 20110329
  Transmission Date: 20111010
  Serious: Yes (Hospitalization)
  Sender: FDA-Public Use
  Company Number: A0714737A

PATIENT
  Age: 44 Year
  Sex: Female
  Weight: 135.5 kg

DRUGS (21)
  1. ALPRAZOLAM [Concomitant]
  2. ADVAIR DISKUS 100/50 [Concomitant]
  3. PROMETHAZINE [Concomitant]
  4. TRAZODONE HCL [Concomitant]
  5. SINGULAIR [Concomitant]
  6. FLONASE [Concomitant]
  7. CYCLOBENZAPRINE [Concomitant]
  8. PREDNISONE [Concomitant]
  9. AVANDAMET [Suspect]
     Route: 048
     Dates: start: 20040520
  10. CELEBREX [Concomitant]
  11. CYMBALTA [Concomitant]
  12. DIOVAN [Concomitant]
  13. AMBIEN [Concomitant]
  14. AVANDIA [Suspect]
     Dosage: 4MG PER DAY
     Route: 048
     Dates: start: 20050502, end: 20070901
  15. WELLBUTRIN [Concomitant]
  16. SKELAXIN [Concomitant]
  17. FLOMAX [Concomitant]
  18. FLOVENT [Concomitant]
  19. LUNESTA [Concomitant]
  20. LASIX [Concomitant]
  21. ACIPHEX [Concomitant]

REACTIONS (4)
  - CARDIOMYOPATHY [None]
  - HEART INJURY [None]
  - CARDIAC FAILURE CONGESTIVE [None]
  - MYOCARDIAL INFARCTION [None]
